FAERS Safety Report 8563998-6 (Version None)
Quarter: 2012Q3

REPORT INFORMATION
  Report Type: 
  Country: None (occurrence: None)
  Receive Date: 20120803
  Receipt Date: 20120731
  Transmission Date: 20120928
  Serious: Yes (Hospitalization, Other)
  Sender: FDA-Public Use
  Company Number: PHHY2011AU116404

PATIENT
  Sex: Female
  Weight: 82 kg

DRUGS (20)
  1. WARFARIN SODIUM [Concomitant]
     Dosage: 5MG DAILY M.D.U
     Route: 048
  2. ADVANTAN [Concomitant]
     Dosage: APPLY 1ML NOCTE TO THE SCALP
     Route: 061
  3. ATENOLOL [Concomitant]
     Dosage: 1/2 DAILY
     Route: 048
  4. DIPROSONE OV [Concomitant]
     Dosage: APPLY NOCTE SPARINGLY, AND COVER WITH WARM DAMP TOWEL FOR 30 MINUTES
     Route: 061
  5. NILSTAT [Concomitant]
     Dosage: 1ML Q.I.D. AND HOLD IN THE MOUTH AS LONG AS POSSIBLE
     Route: 048
  6. DIGOXIN [Concomitant]
     Dosage: HALF DAILY
     Route: 048
  7. LASIX [Concomitant]
     Dosage: 1 MANE
     Route: 048
  8. LIPITOR [Concomitant]
     Dosage: 1 DAILY
     Route: 048
  9. WARFARIN SODIUM [Concomitant]
     Dosage: 1MG DAILY M.D.U.
     Route: 048
  10. WARFARIN SODIUM [Concomitant]
     Dosage: 3MG DAILY M.D.U
     Route: 048
  11. ADVANTAN [Concomitant]
     Dosage: APPLY DAILY P.R.N
     Route: 061
  12. MOVIPREP [Concomitant]
     Dosage: 13.125MG/350.7MG/46.6MG/178.5MG 3 DAILY TO KEEP MOTIONS SOFT
     Route: 048
  13. PANTOPRAZOLE [Concomitant]
     Dosage: 1 DAILY
     Route: 048
  14. SPAN-K [Concomitant]
     Dosage: 2 DAILY
     Route: 048
  15. FEBRIDOL [Concomitant]
     Indication: PYREXIA
     Dosage: 2 Q.I.D PRN FOR PAIN OR FEVER
     Route: 048
  16. MOBIC [Concomitant]
     Dosage: 1-2 DAILY PRN
     Route: 048
  17. ZOLEDRONOC ACID [Suspect]
     Dosage: 5 MG, FIRST INFUSION
     Route: 042
     Dates: start: 20100813
  18. BUPRENORPHINE (NORSPAN) [Concomitant]
     Dosage: 5MG (RELEASED AT 5MCG/HR) APPLY WEEKLY TO HAIRLESS SKIN OF UPPER BODY OR ARM
     Route: 062
  19. OSTELIN VITAMIN D [Concomitant]
     Dosage: 1 DAILY
     Route: 048
  20. BETNOVATE [Concomitant]
     Dosage: APPLY DAILY PRN
     Route: 061

REACTIONS (3)
  - BREAST CANCER [None]
  - RADIUS FRACTURE [None]
  - ULNA FRACTURE [None]
